FAERS Safety Report 21252148 (Version 3)
Quarter: 2022Q4

REPORT INFORMATION
  Report Type: Report from Study
  Country: US (occurrence: US)
  Receive Date: 20220825
  Receipt Date: 20221221
  Transmission Date: 20230113
  Serious: No
  Sender: FDA-Public Use
  Company Number: US-NOVARTISTESTPH-NVSC2022US189644

PATIENT
  Age: 5 Year
  Sex: Female

DRUGS (2)
  1. ILARIS [Suspect]
     Active Substance: CANAKINUMAB
     Indication: Pyrexia
     Dosage: 40 MG, Q4W
     Route: 058
     Dates: start: 202208
  2. ILARIS [Suspect]
     Active Substance: CANAKINUMAB
     Dosage: 80 MG, Q4W
     Route: 058
     Dates: start: 20220621

REACTIONS (2)
  - Asthma [Unknown]
  - Urinary tract infection [Unknown]

NARRATIVE: CASE EVENT DATE: 20220801
